FAERS Safety Report 8733729 (Version 2)
Quarter: 2012Q4

REPORT INFORMATION
  Report Type: 
  Country: US (occurrence: US)
  Receive Date: 20120821
  Receipt Date: 20121128
  Transmission Date: 20130627
  Serious: Yes (Hospitalization)
  Sender: FDA-Public Use
  Company Number: US-BAYER-2012-083052

PATIENT
  Age: 28 Year
  Sex: Female
  Weight: 99.77 kg

DRUGS (8)
  1. YAZ [Suspect]
     Indication: CONTRACEPTION
     Dosage: UNK;QD
     Route: 048
     Dates: start: 200805, end: 201201
  2. YAZ [Suspect]
     Indication: MENSTRUAL CYCLE MANAGEMENT
  3. YASMIN [Suspect]
     Dosage: UNK
     Dates: start: 200805
  4. GIANVI [Suspect]
     Dosage: UNK
     Dates: start: 201102, end: 201103
  5. LORYNA (DROSPIRENONE AND ETHINYL ESTRADIOL) [Suspect]
     Dosage: UNK
     Dates: start: 201106, end: 201112
  6. KEPPRA [Concomitant]
     Dosage: 750 mg, QD
     Route: 048
  7. PROPRANOLOL [Concomitant]
     Dosage: 80 mg, QD
     Route: 048
  8. VITAMIN D [Concomitant]
     Dosage: 1000 u, QD

REACTIONS (6)
  - Cholecystitis chronic [None]
  - Cholecystitis [None]
  - Injury [None]
  - Pain [None]
  - Emotional distress [None]
  - Abdominal pain [None]
